FAERS Safety Report 8926110 (Version 1)
Quarter: 2012Q4

REPORT INFORMATION
  Report Type: 
  Country: US (occurrence: US)
  Receive Date: 20121127
  Receipt Date: 20121127
  Transmission Date: 20130627
  Serious: Yes (Other)
  Sender: FDA-Public Use
  Company Number: US-AMGEN-USASP2012075739

PATIENT
  Age: 64 Year
  Sex: Female
  Weight: 62 kg

DRUGS (5)
  1. PEGFILGRASTIM [Suspect]
     Indication: BREAST CANCER
     Dosage: 6 mg, UNK
     Route: 060
     Dates: start: 20091001
  2. BEVACIZUMAB [Suspect]
     Indication: BREAST CANCER
     Dosage: UNK, over 30-90 min on day 1.
     Route: 042
     Dates: start: 20091001
  3. CYCLOPHOSPHAMIDE [Suspect]
     Indication: BREAST CANCER
     Dosage: 600 mg/m2, over 20-30 min on day 1
     Route: 042
     Dates: start: 20091001
  4. DOXORUBICIN [Suspect]
     Indication: BREAST CANCER
     Dosage: 60 mg/m2, on day 1
     Route: 042
     Dates: start: 20091001
  5. PACLITAXEL [Suspect]
     Indication: BREAST CANCER
     Dosage: 80 mg/m2, UNK over 1 hr on days 1, 8 and 15
     Route: 042
     Dates: start: 20091001

REACTIONS (1)
  - Upper respiratory tract infection [Recovered/Resolved]
